FAERS Safety Report 18299348 (Version 2)
Quarter: 2020Q4

REPORT INFORMATION
  Report Type: Spontaneous
  Country: US (occurrence: US)
  Receive Date: 20200923
  Receipt Date: 20201229
  Transmission Date: 20210113
  Serious: No
  Sender: FDA-Public Use
  Company Number: US-HORIZON-PRO-0220-2020

PATIENT
  Age: 18 Year
  Sex: Male

DRUGS (7)
  1. ONDANSETRON HYDROCHLORIDE. [Concomitant]
     Active Substance: ONDANSETRON HYDROCHLORIDE
  2. AMLODIPINE [Concomitant]
     Active Substance: AMLODIPINE BESYLATE
  3. CYSTARAN [Concomitant]
     Active Substance: CYSTEAMINE HYDROCHLORIDE
  4. PROZAC [Concomitant]
     Active Substance: FLUOXETINE HYDROCHLORIDE
  5. LEBATEALOL [Concomitant]
  6. PROCYSBI [Suspect]
     Active Substance: CYSTEAMINE BITARTRATE
     Indication: CYSTINOSIS
     Dosage: 675MG TWO TIMES DAILY 2 SEPARATED DOSES
     Route: 048
  7. SEVELAMER CARBONATE. [Concomitant]
     Active Substance: SEVELAMER CARBONATE

REACTIONS (7)
  - Skin odour abnormal [Unknown]
  - Abdominal discomfort [Unknown]
  - Depression [Unknown]
  - Nausea [Unknown]
  - Patient dissatisfaction with treatment [Unknown]
  - Treatment noncompliance [Unknown]
  - Diarrhoea [Unknown]
